FAERS Safety Report 18817976 (Version 1)
Quarter: 2021Q1

REPORT INFORMATION
  Report Type: Spontaneous
  Country: DE (occurrence: DE)
  Receive Date: 20210201
  Receipt Date: 20210201
  Transmission Date: 20210419
  Serious: Yes (Other)
  Sender: FDA-Public Use
  Company Number: DE-ALLERGAN-2104398US

PATIENT
  Sex: Male
  Weight: 2.24 kg

DRUGS (3)
  1. ESCITALOPRAM OXALATE ? BP [Suspect]
     Active Substance: ESCITALOPRAM OXALATE
     Indication: EXPOSURE DURING PREGNANCY
     Dosage: 2.5 [MG/D ]0. ? 37.1. GESTATIONAL WEEK
     Route: 064
     Dates: start: 20190822, end: 20200508
  2. PROPESS [Concomitant]
     Active Substance: DINOPROSTONE
     Indication: EXPOSURE DURING PREGNANCY
     Dosage: 37. ? 37. GESTATIONAL WEEK
     Route: 064
     Dates: start: 20200507, end: 20200507
  3. GRIPPEIMPFSTOFF [Concomitant]
     Active Substance: INFLUENZA VIRUS VACCINE
     Indication: EXPOSURE DURING PREGNANCY
     Dosage: UNK UNK, SINGLE
     Route: 064
     Dates: start: 20200312, end: 20200312

REACTIONS (3)
  - Small for dates baby [Recovering/Resolving]
  - Pregnancy [Unknown]
  - Infantile haemangioma [Unknown]

NARRATIVE: CASE EVENT DATE: 20200508
